FAERS Safety Report 4860834-6 (Version None)
Quarter: 2005Q4

REPORT INFORMATION
  Report Type: 
  Country: None (occurrence: None)
  Receive Date: 20051216
  Receipt Date: 20051130
  Transmission Date: 20060501
  Serious: Yes (Hospitalization, Other)
  Sender: FDA-Public Use
  Company Number: US_0508120814

PATIENT
  Age: 49 Year
  Sex: Female
  Weight: 57.1 kg

DRUGS (1)
  1. ZYPREXA [Suspect]
     Indication: DEPRESSION
     Dates: start: 20020101, end: 20030101

REACTIONS (4)
  - CHOLECYSTECTOMY [None]
  - GASTRIC BYPASS [None]
  - PANCREATITIS ACUTE [None]
  - POST GASTRIC SURGERY SYNDROME [None]
